FAERS Safety Report 5185732-2 (Version None)
Quarter: 2006Q4

REPORT INFORMATION
  Report Type: 
  Country: None (occurrence: None)
  Receive Date: 20061220
  Receipt Date: 20060901
  Transmission Date: 20070319
  Serious: No
  Sender: FDA-Public Use
  Company Number: US-GLAXOSMITHKLINE-A0618904A

PATIENT
  Age: 40 Year

DRUGS (5)
  1. NICODERM CQ [Suspect]
     Dates: start: 20060802
  2. LITHIUM CARBONATE [Concomitant]
  3. MELLARIL [Concomitant]
  4. KLONOPIN [Concomitant]
  5. GLUCOPHAGE [Concomitant]

REACTIONS (3)
  - ELEVATED MOOD [None]
  - FEELING ABNORMAL [None]
  - FEELING OF RELAXATION [None]
